FAERS Safety Report 11346902 (Version 1)
Quarter: 2015Q3

REPORT INFORMATION
  Report Type: Spontaneous
  Country: AU (occurrence: AU)
  Receive Date: 20150806
  Receipt Date: 20150806
  Transmission Date: 20151125
  Serious: Yes (Hospitalization)
  Sender: FDA-Public Use
  Company Number: AU-TOLMAR, INC.-2015AU006867

PATIENT
  Age: 68 Year
  Sex: Male

DRUGS (6)
  1. CADUET [Concomitant]
     Active Substance: AMLODIPINE BESYLATE\ATORVASTATIN CALCIUM
  2. RAMIPRIL. [Concomitant]
     Active Substance: RAMIPRIL
  3. ZOLOFT [Concomitant]
     Active Substance: SERTRALINE HYDROCHLORIDE
  4. PARIET [Concomitant]
     Active Substance: RABEPRAZOLE SODIUM
  5. ELIGARD [Suspect]
     Active Substance: LEUPROLIDE ACETATE
     Indication: PROSTATE CANCER
     Dosage: 22.5 MG, Q3MONTHS
     Route: 065
     Dates: start: 20150714
  6. COSUDEX [Concomitant]
     Active Substance: BICALUTAMIDE

REACTIONS (7)
  - Kidney enlargement [Unknown]
  - Device occlusion [Unknown]
  - Haemoglobin decreased [Unknown]
  - Renal pain [Unknown]
  - Feeling cold [Unknown]
  - Fatigue [Unknown]
  - Urinary tract infection [Unknown]

NARRATIVE: CASE EVENT DATE: 20150727
